FAERS Safety Report 15866759 (Version 2)
Quarter: 2021Q3

REPORT INFORMATION
  Report Type: Spontaneous
  Country: GB (occurrence: GB)
  Receive Date: 20190125
  Receipt Date: 20210812
  Transmission Date: 20211014
  Serious: Yes (Hospitalization, Other)
  Sender: FDA-Public Use
  Company Number: GB-ALKEM LABORATORIES LIMITED-GB-ALKEM-2019-00697

PATIENT
  Age: 15 Year
  Sex: Male

DRUGS (6)
  1. MYCOPHENOLATE MOFETIL. [Suspect]
     Active Substance: MYCOPHENOLATE MOFETIL
     Indication: HEART TRANSPLANT
  2. MYCOPHENOLATE MOFETIL. [Suspect]
     Active Substance: MYCOPHENOLATE MOFETIL
     Indication: IMMUNOSUPPRESSANT DRUG THERAPY
     Dosage: UNK
     Route: 065
  3. THYMOGLOBULIN [Suspect]
     Active Substance: LAPINE T-LYMPHOCYTE IMMUNE GLOBULIN
     Indication: IMMUNOSUPPRESSANT DRUG THERAPY
  4. TACROLIMUS. [Suspect]
     Active Substance: TACROLIMUS
     Indication: HEART TRANSPLANT
  5. TACROLIMUS. [Suspect]
     Active Substance: TACROLIMUS
     Indication: IMMUNOSUPPRESSANT DRUG THERAPY
     Dosage: UNK
     Route: 065
  6. THYMOGLOBULIN [Suspect]
     Active Substance: LAPINE T-LYMPHOCYTE IMMUNE GLOBULIN
     Indication: HEART TRANSPLANT
     Dosage: UNK
     Route: 065

REACTIONS (19)
  - Sleep apnoea syndrome [Recovering/Resolving]
  - Lymphadenopathy [Recovering/Resolving]
  - Behcet^s syndrome [Recovering/Resolving]
  - Neutropenia [Recovering/Resolving]
  - Dermatitis acneiform [Recovering/Resolving]
  - Gastrointestinal wall thickening [Recovering/Resolving]
  - Mucosal hypertrophy [Recovering/Resolving]
  - Weight decreased [Recovering/Resolving]
  - Pharyngeal polyp [Recovering/Resolving]
  - Febrile neutropenia [Recovering/Resolving]
  - Scrotal ulcer [Recovering/Resolving]
  - Drug ineffective [Unknown]
  - Microcytic anaemia [Recovering/Resolving]
  - Gingival hypertrophy [Recovering/Resolving]
  - Lymphopenia [Recovering/Resolving]
  - Hepatosplenomegaly [Recovering/Resolving]
  - Dehydration [Recovering/Resolving]
  - Chronic kidney disease [Unknown]
  - Mouth ulceration [Recovering/Resolving]
